FAERS Safety Report 9336909 (Version 2)
Quarter: 2013Q2

REPORT INFORMATION
  Report Type: Report from Study
  Country: FR (occurrence: FR)
  Receive Date: 20130607
  Receipt Date: 20130616
  Transmission Date: 20140414
  Serious: Yes (Hospitalization)
  Sender: FDA-Public Use
  Company Number: FR-UCBSA-079881

PATIENT
  Age: 73 Year
  Sex: Female
  Weight: 69 kg

DRUGS (13)
  1. CIMZIA [Suspect]
     Indication: RHEUMATOID ARTHRITIS
     Route: 058
     Dates: start: 20130214, end: 201304
  2. CIMZIA [Suspect]
     Indication: RHEUMATOID ARTHRITIS
     Route: 058
     Dates: start: 201212, end: 20130130
  3. CIMZIA [Suspect]
     Indication: RHEUMATOID ARTHRITIS
     Route: 058
     Dates: start: 20121122, end: 201212
  4. PREDNISONE [Concomitant]
     Indication: RHEUMATOID ARTHRITIS
     Route: 048
     Dates: start: 201208, end: 20130124
  5. PARACETAMOL [Concomitant]
     Indication: RHEUMATOID ARTHRITIS
     Route: 058
     Dates: start: 2013
  6. PARACETAMOL [Concomitant]
     Indication: RHEUMATOID ARTHRITIS
     Route: 048
     Dates: start: 2013
  7. IMOVANE [Concomitant]
     Indication: SLEEP DISORDER
     Dosage: DAILY DOSE: 7.5 MG
     Route: 048
     Dates: start: 201304
  8. SERESTA [Concomitant]
     Indication: SLEEP DISORDER
     Dosage: DAILY DOSE: 10 MG
     Route: 048
     Dates: start: 201304
  9. LANTUS [Concomitant]
     Indication: DIABETES MELLITUS
     Route: 058
  10. METFORMIN [Concomitant]
     Indication: DIABETES MELLITUS
     Route: 048
     Dates: start: 201304
  11. DEROXAT [Concomitant]
     Indication: DEPRESSION
     Dosage: DAILY DOSE: 20 MG
     Route: 048
  12. LEVOTHYROX [Concomitant]
     Indication: HYPOTHYROIDISM
     Dosage: DAILY DOSE: 50 MCG
     Route: 048
  13. HYDROCORTISONE [Concomitant]
     Indication: RHEUMATOID ARTHRITIS
     Dosage: DAILY DOSE: 20 MG
     Route: 048
     Dates: start: 20130214

REACTIONS (4)
  - Subdural haematoma [Unknown]
  - Subarachnoid haemorrhage [Unknown]
  - Anaemia [Not Recovered/Not Resolved]
  - Thrombocytosis [Unknown]
